FAERS Safety Report 6385190-6 (Version None)
Quarter: 2009Q4

REPORT INFORMATION
  Report Type: 
  Country: None (occurrence: None)
  Receive Date: 20091002
  Receipt Date: 20090119
  Transmission Date: 20100525
  Serious: No
  Sender: FDA-Public Use
  Company Number: US-ASTRAZENECA-2006UW17682

PATIENT
  Age: 60 Year
  Sex: Female
  Weight: 65 kg

DRUGS (13)
  1. ARIMIDEX [Suspect]
     Indication: BREAST CANCER
     Route: 048
     Dates: start: 20010101
  2. ALLEGRA D 24 HOUR [Concomitant]
  3. THEO-DUR [Concomitant]
     Indication: ASTHMA
  4. PULMICORT [Concomitant]
     Indication: ASTHMA
  5. PREVACID [Concomitant]
  6. FLONASE [Concomitant]
     Indication: ASTHMA
  7. FORADIL [Concomitant]
     Indication: ASTHMA
  8. LISINOPRIL [Concomitant]
     Indication: BLOOD PRESSURE
  9. CLARITIN [Concomitant]
     Indication: HYPERSENSITIVITY
  10. VICODIN [Concomitant]
     Indication: PAIN
  11. PROVENTIL-HFA [Concomitant]
     Indication: HYPERSENSITIVITY
  12. INTAL [Concomitant]
     Indication: HYPERSENSITIVITY
  13. DARVOCET [Concomitant]
     Indication: MIGRAINE

REACTIONS (9)
  - ARTHRALGIA [None]
  - ARTHRITIS [None]
  - ASTHMA [None]
  - BACK PAIN [None]
  - BONE PAIN [None]
  - DYSPNOEA [None]
  - FATIGUE [None]
  - HOT FLUSH [None]
  - INSOMNIA [None]
